FAERS Safety Report 8592156-4 (Version None)
Quarter: 2012Q3

REPORT INFORMATION
  Report Type: 
  Country: None (occurrence: None)
  Receive Date: 20120814
  Receipt Date: 20120803
  Transmission Date: 20120928
  Serious: Yes (Other)
  Sender: FDA-Public Use
  Company Number: IT-ELI_LILLY_AND_COMPANY-IT201207004570

PATIENT
  Sex: Female

DRUGS (5)
  1. LEVOMEFOLATE CALCIUM [Concomitant]
     Dosage: 1 DF, UNKNOWN
  2. ZYPREXA [Suspect]
     Indication: SCHIZOID PERSONALITY DISORDER
     Dosage: 10 MG, QD
     Dates: start: 20070705, end: 20120705
  3. DELORAZEPAM [Concomitant]
     Dosage: 1 DF, UNKNOWN
  4. ESTAZOLAM [Concomitant]
     Dosage: 2 DF, UNKNOWN
  5. DIAZEPAM [Concomitant]
     Dosage: 0.5 MG, UNKNOWN
     Route: 048

REACTIONS (1)
  - NEUTROPENIA [None]
